FAERS Safety Report 16760159 (Version 10)
Quarter: 2021Q1

REPORT INFORMATION
  Report Type: Spontaneous
  Country: US (occurrence: US)
  Receive Date: 20190830
  Receipt Date: 20210302
  Transmission Date: 20210419
  Serious: Yes (Hospitalization)
  Sender: FDA-Public Use
  Company Number: US-PFIZER INC-2019371987

PATIENT
  Age: 54 Year
  Sex: Female

DRUGS (2)
  1. SOMAVERT [Suspect]
     Active Substance: PEGVISOMANT
     Indication: GIGANTISM
     Dosage: 10 MG, DAILY
     Route: 058
     Dates: start: 20180925
  2. SOMAVERT [Suspect]
     Active Substance: PEGVISOMANT
     Indication: ACROMEGALY
     Dosage: 10 MG
     Route: 058
     Dates: start: 20171028

REACTIONS (5)
  - Pancreatic enzymes increased [Unknown]
  - Drug dose omission by device [Unknown]
  - Diarrhoea [Unknown]
  - Device leakage [Unknown]
  - Product dose omission issue [Unknown]

NARRATIVE: CASE EVENT DATE: 2019
